FAERS Safety Report 22166877 (Version 2)
Quarter: 2023Q2

REPORT INFORMATION
  Report Type: Spontaneous
  Country: CH (occurrence: None)
  Receive Date: 20230403
  Receipt Date: 20230414
  Transmission Date: 20230721
  Serious: Yes (Other)
  Sender: FDA-Public Use
  Company Number: CH-ROCHE-3319968

PATIENT

DRUGS (5)
  1. KADCYLA [Suspect]
     Active Substance: ADO-TRASTUZUMAB EMTANSINE
     Indication: Breast cancer
     Route: 065
  2. PERJETA [Concomitant]
     Active Substance: PERTUZUMAB
     Dates: start: 20200707
  3. HERCEPTIN [Concomitant]
     Active Substance: TRASTUZUMAB
     Route: 065
     Dates: start: 20200707
  4. PARAPLATIN [Concomitant]
     Active Substance: CARBOPLATIN
     Dates: start: 20200707
  5. DOCETAXEL [Concomitant]
     Active Substance: DOCETAXEL
     Dates: start: 20200707

REACTIONS (8)
  - Hair growth abnormal [Unknown]
  - Myalgia [Unknown]
  - Onychomadesis [Unknown]
  - Fatigue [Unknown]
  - Arthralgia [Unknown]
  - Bone pain [Unknown]
  - Nasopharyngitis [Unknown]
  - Pain [Unknown]
